FAERS Safety Report 8035135 (Version 4)
Quarter: 2015Q4

REPORT INFORMATION
  Report Type: Spontaneous
  Country: JP (occurrence: JP)
  Receive Date: 20110714
  Receipt Date: 20151028
  Transmission Date: 20160305
  Serious: Yes (Death, Life-Threatening, Other)
  Sender: FDA-Public Use
  Company Number: JP-ROCHE-586790

PATIENT
  Age: 73 Year
  Sex: Male
  Weight: 45 kg

DRUGS (21)
  1. 5-FU [Suspect]
     Active Substance: FLUOROURACIL
     Indication: COLON CANCER METASTATIC
     Dosage: ROUTE: INTRAVENOUS DRIP
     Route: 042
     Dates: start: 20080723, end: 20080724
  2. DECADRON [Concomitant]
     Active Substance: DEXAMETHASONE
     Route: 050
     Dates: start: 20080903, end: 20080904
  3. AVASTIN [Suspect]
     Active Substance: BEVACIZUMAB
     Indication: COLON CANCER METASTATIC
     Dosage: NOTE: 229.5 MG
     Route: 041
     Dates: start: 20080723, end: 20080723
  4. 5-FU [Suspect]
     Active Substance: FLUOROURACIL
     Indication: COLON CANCER METASTATIC
     Dosage: ROUTE: INTRAVENOUS DRIP
     Route: 042
     Dates: start: 20080903, end: 20080904
  5. AVASTIN [Suspect]
     Active Substance: BEVACIZUMAB
     Indication: COLON CANCER METASTATIC
     Dosage: 5MG/KG
     Route: 041
     Dates: start: 20080903, end: 20080903
  6. ISOVORIN [Suspect]
     Active Substance: LEUCOVORIN CALCIUM
     Indication: COLON CANCER METASTATIC
     Route: 041
     Dates: start: 20080723, end: 20080724
  7. DECADRON [Concomitant]
     Active Substance: DEXAMETHASONE
     Dosage: ROUTE: INJECTABLE (NOT OTHERWISE SPECIFIED).
     Route: 050
     Dates: start: 20080723, end: 20080724
  8. ELPLAT [Suspect]
     Active Substance: OXALIPLATIN
     Indication: COLON CANCER METASTATIC
     Route: 041
     Dates: start: 20080723, end: 20080723
  9. ELPLAT [Suspect]
     Active Substance: OXALIPLATIN
     Indication: COLON CANCER METASTATIC
     Route: 041
     Dates: start: 20080806, end: 20080806
  10. 5-FU [Suspect]
     Active Substance: FLUOROURACIL
     Indication: COLON CANCER METASTATIC
     Dosage: ROUTE: INTRAVENOUS DRIP.
     Route: 042
     Dates: start: 20080806, end: 20080807
  11. ISOVORIN [Suspect]
     Active Substance: LEUCOVORIN CALCIUM
     Indication: COLON CANCER METASTATIC
     Route: 041
     Dates: start: 20080806, end: 20080807
  12. ISOVORIN [Suspect]
     Active Substance: LEUCOVORIN CALCIUM
     Indication: COLON CANCER METASTATIC
     Route: 041
     Dates: start: 20080903, end: 20080903
  13. KYTRIL [Concomitant]
     Active Substance: GRANISETRON HYDROCHLORIDE
     Route: 050
     Dates: start: 20080903, end: 20080904
  14. KYTRIL [Concomitant]
     Active Substance: GRANISETRON HYDROCHLORIDE
     Route: 050
     Dates: start: 20080806, end: 20080807
  15. AVASTIN [Suspect]
     Active Substance: BEVACIZUMAB
     Indication: COLON CANCER METASTATIC
     Dosage: NOTE: 229.5 MG
     Route: 041
     Dates: start: 20080806, end: 20080806
  16. 5-FU [Suspect]
     Active Substance: FLUOROURACIL
     Indication: COLON CANCER METASTATIC
     Dosage: ROUTE: INTRAVENOUS BOLUS
     Route: 042
     Dates: start: 20080903, end: 20080904
  17. DECADRON [Concomitant]
     Active Substance: DEXAMETHASONE
     Route: 050
     Dates: start: 20080806, end: 20080807
  18. KYTRIL [Concomitant]
     Active Substance: GRANISETRON HYDROCHLORIDE
     Dosage: ROUTE: INJECTABLE (NOT OTHERWISE SPECIFIED).
     Route: 050
     Dates: start: 20080723, end: 20080724
  19. 5-FU [Suspect]
     Active Substance: FLUOROURACIL
     Indication: COLON CANCER METASTATIC
     Dosage: ROUTE: INTRAVENOUS BOLUS
     Route: 042
     Dates: start: 20080806, end: 20080807
  20. ELPLAT [Suspect]
     Active Substance: OXALIPLATIN
     Indication: COLON CANCER METASTATIC
     Route: 041
     Dates: start: 20080903, end: 20080903
  21. 5-FU [Suspect]
     Active Substance: FLUOROURACIL
     Indication: COLON CANCER METASTATIC
     Dosage: ROUTE: INTRAVENOUS BOLUS
     Route: 042
     Dates: start: 20080723, end: 20080724

REACTIONS (6)
  - Leukopenia [Unknown]
  - Acute respiratory distress syndrome [Recovered/Resolved]
  - Colon cancer metastatic [Fatal]
  - Haemoptysis [Recovered/Resolved]
  - Neutrophil count decreased [Recovered/Resolved]
  - Nausea [Unknown]

NARRATIVE: CASE EVENT DATE: 200808
